FAERS Safety Report 22641128 (Version 1)
Quarter: 2023Q2

REPORT INFORMATION
  Report Type: Spontaneous
  Country: FR (occurrence: FR)
  Receive Date: 20230626
  Receipt Date: 20230626
  Transmission Date: 20230721
  Serious: Yes (Hospitalization, Other)
  Sender: FDA-Public Use
  Company Number: None

PATIENT
  Age: 61 Year
  Sex: Female

DRUGS (1)
  1. LETROZOLE [Suspect]
     Active Substance: LETROZOLE
     Indication: Breast cancer
     Dosage: 2.5 MILLIGRAM, QD
     Route: 048
     Dates: start: 202009, end: 20220727

REACTIONS (2)
  - Organising pneumonia [Recovered/Resolved with Sequelae]
  - Atelectasis [Recovered/Resolved with Sequelae]

NARRATIVE: CASE EVENT DATE: 20210301
